FAERS Safety Report 16217636 (Version 2)
Quarter: 2019Q2

REPORT INFORMATION
  Report Type: Spontaneous
  Country: US (occurrence: US)
  Receive Date: 20190419
  Receipt Date: 20190507
  Transmission Date: 20190711
  Serious: No
  Sender: FDA-Public Use
  Company Number: US-THERAPEUTICSMD-2019TMD00600

PATIENT
  Sex: Female
  Weight: 82.99 kg

DRUGS (15)
  1. BACLOFEN. [Concomitant]
     Active Substance: BACLOFEN
  2. VITAMIN B12 [Concomitant]
     Active Substance: CYANOCOBALAMIN
     Dosage: 2500 ?G, 1X/DAY
  3. IMVEXXY [Suspect]
     Active Substance: ESTRADIOL
     Indication: HYPERTONIC BLADDER
     Dosage: 10 ?G, 1X/DAY BEFORE BED
     Route: 067
     Dates: start: 20180920, end: 20181003
  4. ATENOLOL. [Concomitant]
     Active Substance: ATENOLOL
     Dosage: 25 MG, 1X/DAY
  5. AMILORIDE [Concomitant]
     Active Substance: AMILORIDE
     Dosage: 5 MG, 1X/DAY
  6. LYRICA [Concomitant]
     Active Substance: PREGABALIN
     Dosage: 50 MG, 2X/DAY
  7. MODAFANIL [Concomitant]
     Active Substance: MODAFINIL
     Dosage: 200 MG, 1X/DAY
     Dates: start: 2019
  8. TRAMADOL. [Concomitant]
     Active Substance: TRAMADOL
     Dosage: 50 MG, EVERY 8 HOURS AS NEEDED
  9. ASPIRIN. [Concomitant]
     Active Substance: ASPIRIN
     Dosage: 81 MG, 1X/DAY
  10. VITAMIN D3 [Concomitant]
     Active Substance: CHOLECALCIFEROL
     Dosage: 5000 IU, 1X/DAY
  11. PRILOSEC [Concomitant]
     Active Substance: OMEPRAZOLE MAGNESIUM
     Dosage: 20 MG, 1X/DAY
  12. IMVEXXY [Suspect]
     Active Substance: ESTRADIOL
     Indication: INCONTINENCE
     Dosage: 10 ?G, 2X/WEEK BEFORE BED
     Route: 067
     Dates: start: 201810, end: 20190402
  13. MYRBETRIQ [Concomitant]
     Active Substance: MIRABEGRON
     Dosage: 50 MG, 1X/DAY
  14. GABAPENTIN. [Concomitant]
     Active Substance: GABAPENTIN
     Dosage: 100 MG, 1X/DAY
  15. GLUCOSAMINE-CHONDROITIN [Concomitant]
     Active Substance: CHONDROITIN SULFATE (BOVINE)\GLUCOSAMINE SULFATE
     Dosage: UNK, 1X/DAY

REACTIONS (7)
  - Hot flush [Recovered/Resolved]
  - Off label use [Recovered/Resolved]
  - Dyspnoea [Not Recovered/Not Resolved]
  - Cardiac disorder [Recovered/Resolved]
  - Discomfort [Not Recovered/Not Resolved]
  - Autonomic nervous system imbalance [Not Recovered/Not Resolved]
  - Hyperhidrosis [Recovered/Resolved]

NARRATIVE: CASE EVENT DATE: 2018
